FAERS Safety Report 18260438 (Version 1)
Quarter: 2020Q3

REPORT INFORMATION
  Report Type: Spontaneous
  Country: FR (occurrence: FR)
  Receive Date: 20200914
  Receipt Date: 20200914
  Transmission Date: 20201103
  Serious: Yes (Other)
  Sender: FDA-Public Use
  Company Number: FR-TEVA-2020-FR-1825479

PATIENT
  Age: 43 Year
  Sex: Female
  Weight: 80 kg

DRUGS (4)
  1. AMOXICILLINE [Suspect]
     Active Substance: AMOXICILLIN
     Indication: TOOTH DISORDER
     Dosage: UNIT DOSE 1DF
     Route: 048
     Dates: start: 20120723, end: 20120723
  2. PARACETAMOL [Suspect]
     Active Substance: ACETAMINOPHEN
     Indication: TOOTH DISORDER
     Dosage: UNIT DOSE 1DF
     Route: 048
     Dates: start: 20120723, end: 20120723
  3. ACIDE CLAVULANIQUE [Suspect]
     Active Substance: CLAVULANIC ACID
     Indication: TOOTH DISORDER
     Dosage: UNIT DOSE 1DF
     Route: 048
     Dates: start: 20120723, end: 20120723
  4. CODEINE [Suspect]
     Active Substance: CODEINE
     Indication: TOOTH DISORDER
     Dosage: UNIT DOSE 1DF
     Route: 048
     Dates: start: 20120723, end: 20120723

REACTIONS (2)
  - Erythema [Recovered/Resolved]
  - Face oedema [Recovered/Resolved]

NARRATIVE: CASE EVENT DATE: 20120723
